FAERS Safety Report 24712625 (Version 1)
Quarter: 2024Q4

REPORT INFORMATION
  Report Type: Spontaneous
  Country: US (occurrence: None)
  Receive Date: 20241207
  Receipt Date: 20241207
  Transmission Date: 20250114
  Serious: Yes (Life-Threatening, Hospitalization, Disabling)
  Sender: Public
  Company Number: None

PATIENT
  Age: 57 Year
  Sex: Female
  Weight: 78.75 kg

DRUGS (3)
  1. GABAPENTIN [Suspect]
     Active Substance: GABAPENTIN
     Indication: Fibromyalgia
     Dates: start: 20240503, end: 20240604
  2. LAMOTRIGINE [Concomitant]
     Active Substance: LAMOTRIGINE
  3. VITAMIN D [Concomitant]
     Active Substance: VITAMIN D NOS

REACTIONS (3)
  - Mania [None]
  - Delusion [None]
  - Suicidal ideation [None]

NARRATIVE: CASE EVENT DATE: 20240604
